FAERS Safety Report 9275721 (Version 2)
Quarter: 2013Q2

REPORT INFORMATION
  Report Type: Spontaneous
  Country: US (occurrence: US)
  Receive Date: 20130507
  Receipt Date: 20130617
  Transmission Date: 20140414
  Serious: Yes (Other)
  Sender: FDA-Public Use
  Company Number: US-AMGEN-USASP2013030612

PATIENT
  Age: 89 Year
  Sex: Female
  Weight: 54.24 kg

DRUGS (9)
  1. NPLATE [Suspect]
     Indication: IDIOPATHIC THROMBOCYTOPENIC PURPURA
     Dosage: 540 MUG, QWK
     Route: 058
     Dates: start: 201109, end: 20130306
  2. MECLIZINE                          /00072801/ [Concomitant]
  3. SYNTHROID [Concomitant]
  4. TRIAMTERENE AND HYDROCHLOROTHIAZIDE [Concomitant]
  5. QUININE [Concomitant]
  6. CLONAZEPAM [Concomitant]
  7. TRAMADOL [Concomitant]
  8. NEURONTIN [Concomitant]
  9. PRILOSEC                           /00661201/ [Concomitant]

REACTIONS (2)
  - Platelet count decreased [Not Recovered/Not Resolved]
  - Therapeutic response decreased [Unknown]
